FAERS Safety Report 17130600 (Version 12)
Quarter: 2021Q3

REPORT INFORMATION
  Report Type: Report from Study
  Country: None (occurrence: US)
  Receive Date: 20191209
  Receipt Date: 20210707
  Transmission Date: 20211014
  Serious: Yes (Hospitalization, Other)
  Sender: FDA-Public Use
  Company Number: US-ABBVIE-19K-163-3132608-00

PATIENT
  Age: 75 Year
  Sex: Female

DRUGS (50)
  1. IMBRUVICA [Suspect]
     Active Substance: IBRUTINIB
     Indication: WALDENSTROM^S MACROGLOBULINAEMIA
     Route: 048
     Dates: start: 20170210
  2. OXYCONTIN [Suspect]
     Active Substance: OXYCODONE HYDROCHLORIDE
     Indication: PAIN
     Dosage: 20 MG IN AM AND 10 MG IN PM
     Route: 048
  3. DOXYCYCLINE. [Suspect]
     Active Substance: DOXYCYCLINE
     Indication: PRECANCEROUS CONDITION
  4. FERROUS GLUCONATE [Concomitant]
     Active Substance: FERROUS GLUCONATE
     Indication: PRODUCT USED FOR UNKNOWN INDICATION
  5. ATARAX [Concomitant]
     Active Substance: HYDROXYZINE HYDROCHLORIDE
     Indication: PRODUCT USED FOR UNKNOWN INDICATION
  6. TOPROL XL [Concomitant]
     Active Substance: METOPROLOL SUCCINATE
     Indication: PRODUCT USED FOR UNKNOWN INDICATION
     Route: 048
  7. IMBRUVICA [Suspect]
     Active Substance: IBRUTINIB
     Route: 048
     Dates: start: 20170410, end: 20190827
  8. IMBRUVICA [Suspect]
     Active Substance: IBRUTINIB
     Route: 048
  9. RITUXAN [Suspect]
     Active Substance: RITUXIMAB
     Indication: PRODUCT USED FOR UNKNOWN INDICATION
     Route: 065
  10. PANTOPRAZOLE [Concomitant]
     Active Substance: PANTOPRAZOLE
     Indication: PRODUCT USED FOR UNKNOWN INDICATION
  11. OXYCONTIN [Concomitant]
     Active Substance: OXYCODONE HYDROCHLORIDE
     Indication: PRODUCT USED FOR UNKNOWN INDICATION
     Route: 048
  12. HYDROCODONE [Concomitant]
     Active Substance: HYDROCODONE
     Indication: PRODUCT USED FOR UNKNOWN INDICATION
     Dosage: 7.5/325MG AS NEEDED
  13. DEXILANT [Concomitant]
     Active Substance: DEXLANSOPRAZOLE
     Indication: PRODUCT USED FOR UNKNOWN INDICATION
     Route: 048
  14. NORCO [Concomitant]
     Active Substance: ACETAMINOPHEN\HYDROCODONE BITARTRATE
     Indication: PAIN
  15. OXYCONTIN [Concomitant]
     Active Substance: OXYCODONE HYDROCHLORIDE
     Route: 048
  16. ELIQUIS [Concomitant]
     Active Substance: APIXABAN
     Indication: PRODUCT USED FOR UNKNOWN INDICATION
     Route: 048
  17. MECLIZINE [Concomitant]
     Active Substance: MECLIZINE HYDROCHLORIDE
     Indication: NAUSEA
  18. ZETIA [Concomitant]
     Active Substance: EZETIMIBE
     Indication: PRODUCT USED FOR UNKNOWN INDICATION
  19. INDERAL [Suspect]
     Active Substance: PROPRANOLOL HYDROCHLORIDE
     Indication: PRODUCT USED FOR UNKNOWN INDICATION
     Route: 065
  20. PROTONIX [Concomitant]
     Active Substance: PANTOPRAZOLE SODIUM
     Indication: PRODUCT USED FOR UNKNOWN INDICATION
  21. AUGMENTIN [Concomitant]
     Active Substance: AMOXICILLIN\CLAVULANATE POTASSIUM
     Indication: PRODUCT USED FOR UNKNOWN INDICATION
  22. IMBRUVICA [Suspect]
     Active Substance: IBRUTINIB
     Route: 048
     Dates: start: 20190928
  23. IMBRUVICA [Suspect]
     Active Substance: IBRUTINIB
     Route: 048
  24. STATIN [Suspect]
     Active Substance: UNSPECIFIED INGREDIENT
     Indication: PRODUCT USED FOR UNKNOWN INDICATION
     Route: 065
  25. DOXYCYCLINE. [Suspect]
     Active Substance: DOXYCYCLINE
     Indication: RASH
     Route: 065
  26. PLAVIX [Concomitant]
     Active Substance: CLOPIDOGREL BISULFATE
     Indication: PRODUCT USED FOR UNKNOWN INDICATION
  27. HYDROCODONE [Concomitant]
     Active Substance: HYDROCODONE
     Indication: BREAKTHROUGH PAIN
     Route: 048
  28. PREMARIN [Concomitant]
     Active Substance: ESTROGENS, CONJUGATED
  29. RESTORIL [Concomitant]
     Active Substance: TEMAZEPAM
     Indication: PRODUCT USED FOR UNKNOWN INDICATION
     Route: 048
  30. PREDNISONE. [Concomitant]
     Active Substance: PREDNISONE
     Indication: PRODUCT USED FOR UNKNOWN INDICATION
  31. DILANTIN [Concomitant]
     Active Substance: PHENYTOIN
     Indication: PRODUCT USED FOR UNKNOWN INDICATION
  32. IMBRUVICA [Suspect]
     Active Substance: IBRUTINIB
     Route: 048
     Dates: start: 20200624
  33. VITAMIN D NOS [Concomitant]
     Active Substance: VITAMIN D NOS
     Indication: PRODUCT USED FOR UNKNOWN INDICATION
  34. PHENERGAN [Concomitant]
     Active Substance: PROMETHAZINE HYDROCHLORIDE
     Indication: NAUSEA
  35. IMBRUVICA [Suspect]
     Active Substance: IBRUTINIB
     Route: 048
     Dates: end: 20200522
  36. PREMARIN [Concomitant]
     Active Substance: ESTROGENS, CONJUGATED
     Indication: PRODUCT USED FOR UNKNOWN INDICATION
  37. VITAMIN D NOS [Concomitant]
     Active Substance: VITAMIN D NOS
     Route: 048
  38. FENTANYL. [Concomitant]
     Active Substance: FENTANYL
     Indication: PRODUCT USED FOR UNKNOWN INDICATION
  39. NITRO PATCH [Concomitant]
     Active Substance: NITROGLYCERIN
     Indication: PRODUCT USED FOR UNKNOWN INDICATION
     Route: 003
  40. DOXYCYCLINE. [Concomitant]
     Active Substance: DOXYCYCLINE
     Indication: PRECANCEROUS CONDITION
  41. CORTISONE [Concomitant]
     Active Substance: CORTISONE
     Indication: PRODUCT USED FOR UNKNOWN INDICATION
  42. IMBRUVICA [Suspect]
     Active Substance: IBRUTINIB
     Route: 048
  43. IMBRUVICA [Suspect]
     Active Substance: IBRUTINIB
     Route: 048
  44. IMBRUVICA [Suspect]
     Active Substance: IBRUTINIB
     Route: 048
  45. IRON [Concomitant]
     Active Substance: IRON
     Indication: PRODUCT USED FOR UNKNOWN INDICATION
  46. ESTROGEN [Concomitant]
     Active Substance: ESTROGENS
     Indication: PRODUCT USED FOR UNKNOWN INDICATION
  47. FLONASE [Concomitant]
     Active Substance: FLUTICASONE PROPIONATE
     Indication: PRODUCT USED FOR UNKNOWN INDICATION
     Route: 045
  48. AZELASTINE. [Concomitant]
     Active Substance: AZELASTINE HYDROCHLORIDE
     Indication: PRODUCT USED FOR UNKNOWN INDICATION
     Route: 045
  49. DOXYCYCLINE. [Concomitant]
     Active Substance: DOXYCYCLINE
     Indication: RASH
  50. METOPROLOL. [Concomitant]
     Active Substance: METOPROLOL
     Indication: PRODUCT USED FOR UNKNOWN INDICATION

REACTIONS (103)
  - Fibrin [Unknown]
  - Joint swelling [Unknown]
  - Ear discomfort [Recovering/Resolving]
  - Choking [Unknown]
  - Hypophagia [Unknown]
  - Malaise [Recovered/Resolved]
  - Nausea [Unknown]
  - Neck pain [Unknown]
  - Extrasystoles [Unknown]
  - Eructation [Unknown]
  - Cardiomegaly [Not Recovered/Not Resolved]
  - Chest discomfort [Recovering/Resolving]
  - Fatigue [Recovering/Resolving]
  - Nausea [Recovered/Resolved]
  - Heart rate irregular [Not Recovered/Not Resolved]
  - Ear discomfort [Unknown]
  - Laboratory test abnormal [Recovering/Resolving]
  - Throat tightness [Unknown]
  - Blood immunoglobulin M decreased [Unknown]
  - Weight decreased [Unknown]
  - Initial insomnia [Unknown]
  - Pain in extremity [Not Recovered/Not Resolved]
  - Dehydration [Unknown]
  - Bone pain [Not Recovered/Not Resolved]
  - Vomiting [Unknown]
  - Nasal discomfort [Unknown]
  - Eye irritation [Unknown]
  - Peripheral swelling [Not Recovered/Not Resolved]
  - Muscle spasms [Not Recovered/Not Resolved]
  - Nausea [Recovering/Resolving]
  - Limb discomfort [Recovering/Resolving]
  - Blood cholesterol [Unknown]
  - Blood pressure increased [Not Recovered/Not Resolved]
  - Vomiting [Unknown]
  - Catheterisation cardiac [Unknown]
  - Throat clearing [Recovered/Resolved]
  - Adverse drug reaction [Unknown]
  - Insomnia [Not Recovered/Not Resolved]
  - Arrhythmia [Recovered/Resolved]
  - Contusion [Recovering/Resolving]
  - Headache [Unknown]
  - Illness [Unknown]
  - Temporomandibular joint syndrome [Recovering/Resolving]
  - Pyrexia [Recovered/Resolved]
  - Pyrexia [Recovered/Resolved]
  - Haematoma [Recovered/Resolved]
  - Muscular weakness [Unknown]
  - Night sweats [Recovered/Resolved]
  - Dysphonia [Unknown]
  - Dyspepsia [Not Recovered/Not Resolved]
  - Oedema peripheral [Unknown]
  - Arthralgia [Not Recovered/Not Resolved]
  - Heart rate increased [Recovered/Resolved]
  - Cardiac disorder [Recovering/Resolving]
  - Heart rate increased [Recovered/Resolved]
  - Muscle spasms [Recovered/Resolved]
  - Palpitations [Recovering/Resolving]
  - Peripheral swelling [Unknown]
  - Blood immunoglobulin M abnormal [Unknown]
  - Lymphadenopathy [Not Recovered/Not Resolved]
  - Weight decreased [Unknown]
  - Blood immunoglobulin M increased [Unknown]
  - Hypersensitivity [Unknown]
  - Vertigo [Recovered/Resolved]
  - Heart rate decreased [Unknown]
  - Dyspnoea [Unknown]
  - Body temperature abnormal [Unknown]
  - Hospitalisation [Recovered/Resolved]
  - Blood pressure abnormal [Unknown]
  - Atrial fibrillation [Recovered/Resolved]
  - Peripheral swelling [Recovered/Resolved]
  - Somnolence [Recovered/Resolved]
  - Adverse reaction [Unknown]
  - Hypersomnia [Unknown]
  - Asthenia [Recovered/Resolved]
  - Blood pressure increased [Unknown]
  - Anxiety [Unknown]
  - Cardiac disorder [Not Recovered/Not Resolved]
  - Atrial fibrillation [Recovering/Resolving]
  - Vascular pseudoaneurysm [Unknown]
  - Middle ear effusion [Recovering/Resolving]
  - Pneumonia [Unknown]
  - Sinusitis [Unknown]
  - Chest discomfort [Recovered/Resolved]
  - Ageusia [Unknown]
  - Hiatus hernia [Unknown]
  - Gastrooesophageal reflux disease [Unknown]
  - Pain in extremity [Unknown]
  - Dizziness [Unknown]
  - Decreased appetite [Unknown]
  - Abdominal discomfort [Unknown]
  - Pain [Not Recovered/Not Resolved]
  - Muscle tightness [Recovering/Resolving]
  - Near death experience [Not Recovered/Not Resolved]
  - Precancerous condition [Recovering/Resolving]
  - Paraesthesia [Recovering/Resolving]
  - Cardiac disorder [Unknown]
  - Stress [Unknown]
  - Headache [Recovered/Resolved]
  - Rash [Recovering/Resolving]
  - Myalgia [Not Recovered/Not Resolved]
  - Oral contusion [Unknown]
  - Chest discomfort [Unknown]

NARRATIVE: CASE EVENT DATE: 20190830
